FAERS Safety Report 19591895 (Version 6)
Quarter: 2023Q1

REPORT INFORMATION
  Report Type: Spontaneous
  Country: US (occurrence: US)
  Receive Date: 20210721
  Receipt Date: 20230125
  Transmission Date: 20230418
  Serious: No
  Sender: FDA-Public Use
  Company Number: US-AMGEN-USASP2021110672

PATIENT
  Age: 46 Year
  Sex: Female

DRUGS (2)
  1. ENBREL [Suspect]
     Active Substance: ETANERCEPT
     Indication: Product used for unknown indication
     Dosage: UNK
     Route: 065
     Dates: end: 2021
  2. METHOTREXATE [Concomitant]
     Active Substance: METHOTREXATE
     Dosage: UNK

REACTIONS (4)
  - Injection site reaction [Unknown]
  - Blood pressure increased [Not Recovered/Not Resolved]
  - Arthritis [Unknown]
  - Back pain [Unknown]

NARRATIVE: CASE EVENT DATE: 20210101
